FAERS Safety Report 4649789-7 (Version None)
Quarter: 2005Q2

REPORT INFORMATION
  Report Type: 
  Country: None (occurrence: None)
  Receive Date: 20050428
  Receipt Date: 20050428
  Transmission Date: 20051028
  Serious: Yes (Other)
  Sender: FDA-Public Use
  Company Number: None

PATIENT
  Age: 36 Year
  Sex: Male
  Weight: 70 kg

DRUGS (1)
  1. REMICADE [Suspect]
     Indication: SPONDYLOARTHROPATHY
     Dosage: Q6WEEKS    INTRAVENOU
     Route: 042
     Dates: start: 20040101, end: 20050420

REACTIONS (1)
  - HERPES ZOSTER [None]
